FAERS Safety Report 4563881-7 (Version None)
Quarter: 2005Q1

REPORT INFORMATION
  Report Type: 
  Country: None (occurrence: None)
  Receive Date: 20050128
  Receipt Date: 20050125
  Transmission Date: 20050727
  Serious: Yes (Death)
  Sender: FDA-Public Use
  Company Number: PHBS2005JP01443

PATIENT
  Age: 61 Year
  Sex: Female

DRUGS (2)
  1. NEORAL [Suspect]
     Indication: HEPATITIS C
     Dosage: 200 MG/D
     Route: 048
     Dates: start: 20050106, end: 20050111
  2. INTERFERON [Suspect]
     Indication: HEPATITIS C
     Route: 065
     Dates: start: 20050106

REACTIONS (2)
  - INTRACRANIAL ANEURYSM [None]
  - SUBARACHNOID HAEMORRHAGE [None]
